FAERS Safety Report 10815339 (Version 1)
Quarter: 2015Q1

REPORT INFORMATION
  Report Type: Report from Study
  Country: AR (occurrence: AR)
  Receive Date: 20150218
  Receipt Date: 20150218
  Transmission Date: 20150721
  Serious: Yes (Hospitalization, Other)
  Sender: FDA-Public Use
  Company Number: PHHY2015AR017988

PATIENT
  Age: 65 Year
  Sex: Female

DRUGS (2)
  1. DIOVAN D [Suspect]
     Active Substance: HYDROCHLOROTHIAZIDE\VALSARTAN
     Dosage: 1 DF (320/25 MG), UNK
     Route: 048
     Dates: start: 20150212
  2. DIOVAN D [Suspect]
     Active Substance: HYDROCHLOROTHIAZIDE\VALSARTAN
     Indication: HYPERTENSION
     Dosage: 1 DF (320/25 MG), QD (DAILY)
     Route: 048
     Dates: end: 201404

REACTIONS (4)
  - Cholelithiasis [Recovered/Resolved]
  - Umbilical hernia [Not Recovered/Not Resolved]
  - Oedema peripheral [Recovering/Resolving]
  - Malaise [Recovered/Resolved]

NARRATIVE: CASE EVENT DATE: 201404
